FAERS Safety Report 6464065-8 (Version None)
Quarter: 2009Q4

REPORT INFORMATION
  Report Type: 
  Country: None (occurrence: None)
  Receive Date: 20091201
  Receipt Date: 20091116
  Transmission Date: 20100525
  Serious: Yes (Hospitalization)
  Sender: FDA-Public Use
  Company Number: NL-PFIZER INC-2009300137

PATIENT
  Age: 78 Year
  Sex: Female

DRUGS (2)
  1. SERTRALINE HCL [Suspect]
     Indication: DEPRESSION
     Dosage: 40 MG, 1X/DAY
  2. COUMARIN [Concomitant]
     Indication: ATRIAL FIBRILLATION

REACTIONS (8)
  - CERVICAL VERTEBRAL FRACTURE [None]
  - CONTUSION [None]
  - DISORIENTATION [None]
  - FALL [None]
  - HEADACHE [None]
  - INAPPROPRIATE ANTIDIURETIC HORMONE SECRETION [None]
  - NECK PAIN [None]
  - THIRST [None]
